FAERS Safety Report 24674600 (Version 2)
Quarter: 2025Q4

REPORT INFORMATION
  Report Type: Report from Study
  Country: EU (occurrence: EU)
  Receive Date: 20241128
  Receipt Date: 20251031
  Transmission Date: 20260119
  Serious: Yes (Congenital Anomaly)
  Sender: TEVA
  Company Number: EU-TEVA-VS-3268348

PATIENT

DRUGS (1)
  1. ISOTRETINOIN [Suspect]
     Active Substance: ISOTRETINOIN
     Indication: Acne
     Route: 064

REACTIONS (5)
  - Microcephaly [Unknown]
  - Foetal exposure during pregnancy [Unknown]
  - Pulmonary artery stenosis congenital [Unknown]
  - Ventricular septal defect [Unknown]
  - Congenital anomaly of inner ear [Unknown]
